FAERS Safety Report 4326244-5 (Version None)
Quarter: 2004Q1

REPORT INFORMATION
  Report Type: 
  Country: None (occurrence: None)
  Receive Date: 20040324
  Receipt Date: 20040308
  Transmission Date: 20041129
  Serious: Yes (Hospitalization)
  Sender: FDA-Public Use
  Company Number: A01200401082

PATIENT

DRUGS (1)
  1. STILNOX-(ZOLIPIDEM)-TABLET-10 MG/TABLET-10 MG [Suspect]
     Indication: INSOMNIA
     Dosage: 10 MG PRN/15 MG ORAL
     Route: 048

REACTIONS (4)
  - ATRIAL FIBRILLATION [None]
  - CHEST DISCOMFORT [None]
  - HEART RATE IRREGULAR [None]
  - MEDICATION ERROR [None]
